FAERS Safety Report 5565264-X (Version None)
Quarter: 2007Q4

REPORT INFORMATION
  Report Type: 
  Country: None (occurrence: None)
  Receive Date: 20071218
  Receipt Date: 20071210
  Transmission Date: 20080405
  Serious: Yes (Other)
  Sender: FDA-Public Use
  Company Number: PT-ASTRAZENECA-2007AC02464

PATIENT
  Age: 60 Year
  Sex: Male

DRUGS (2)
  1. CRESTOR [Suspect]
     Indication: HYPERCHOLESTEROLAEMIA
     Route: 048
     Dates: start: 20070501, end: 20071110
  2. CARTIA XT [Concomitant]
     Route: 048
     Dates: start: 20070501

REACTIONS (2)
  - LABORATORY TEST ABNORMAL [None]
  - MYALGIA [None]
